FAERS Safety Report 7427321-2 (Version None)
Quarter: 2011Q2

REPORT INFORMATION
  Report Type: 
  Country: None (occurrence: None)
  Receive Date: 20110420
  Receipt Date: 20110418
  Transmission Date: 20111010
  Serious: Yes (Other)
  Sender: FDA-Public Use
  Company Number: BR-PFIZER INC-2011074828

PATIENT
  Age: 54 Year
  Sex: Female
  Weight: 70 kg

DRUGS (10)
  1. IRON [Suspect]
     Dosage: UNK
  2. TENADREN [Concomitant]
     Indication: HYPERTENSION
     Dosage: UNK
  3. LEXAPRO [Concomitant]
     Indication: ANXIETY
     Dosage: 20 MG, UNK
  4. CHAMPIX [Suspect]
     Indication: TOBACCO USER
     Dosage: 1 MG, 2X/DAY
     Route: 048
     Dates: start: 20110301
  5. SILYMARIN [Concomitant]
     Indication: HEPATIC CIRRHOSIS
     Dosage: UNK
  6. IRON W/FOLIC ACID [Concomitant]
     Indication: HAEMORRHAGE
     Dosage: UNK
  7. METFORMIN [Concomitant]
     Indication: DIABETES MELLITUS
     Dosage: 400 MG, 2X/DAY
  8. PROPRANOLOL [Concomitant]
     Indication: BLOOD PRESSURE INCREASED
     Dosage: 40 MG, 2X/DAY
  9. CHAMPIX [Suspect]
     Indication: SMOKING CESSATION THERAPY
     Dosage: UNK
     Route: 048
     Dates: start: 20110325, end: 20110301
  10. LACTULOSE [Concomitant]
     Indication: PROPHYLAXIS
     Dosage: 667 MG, UNK

REACTIONS (7)
  - SOMNOLENCE [None]
  - GASTROINTESTINAL DISORDER [None]
  - LIVER DISORDER [None]
  - TACHYCARDIA [None]
  - ABDOMINAL DISTENSION [None]
  - HEADACHE [None]
  - SYNCOPE [None]
